FAERS Safety Report 16770254 (Version 1)
Quarter: 2019Q3

REPORT INFORMATION
  Report Type: Spontaneous
  Country: GB (occurrence: GB)
  Receive Date: 20190904
  Receipt Date: 20190904
  Transmission Date: 20191005
  Serious: Yes (Hospitalization)
  Sender: FDA-Public Use
  Company Number: GB-TEVA-2019-GB-1100470

PATIENT
  Age: 44 Year
  Sex: Female
  Weight: 98 kg

DRUGS (13)
  1. ELLESTE DUET [Concomitant]
     Active Substance: ESTRADIOL\NORETHINDRONE ACETATE
  2. PRAMIPEXOLE. [Concomitant]
     Active Substance: PRAMIPEXOLE
  3. CODEINE [Concomitant]
     Active Substance: CODEINE
  4. PROPRANOLOL [Suspect]
     Active Substance: PROPRANOLOL HYDROCHLORIDE
     Indication: MIGRAINE PROPHYLAXIS
     Dosage: 120 MG, 1 DAY
     Route: 048
     Dates: start: 20190201, end: 20190531
  5. AMLODIPINE [Concomitant]
     Active Substance: AMLODIPINE BESYLATE
  6. PARACETAMOL [Concomitant]
     Active Substance: ACETAMINOPHEN
  7. OMEPRAZOLE. [Concomitant]
     Active Substance: OMEPRAZOLE
  8. GABAPENTIN. [Concomitant]
     Active Substance: GABAPENTIN
  9. DEPO-MEDRONE [Concomitant]
     Active Substance: METHYLPREDNISOLONE
  10. IBUPROFEN. [Concomitant]
     Active Substance: IBUPROFEN
  11. BUPRENORPHINE. [Concomitant]
     Active Substance: BUPRENORPHINE
  12. RAMIPRIL. [Concomitant]
     Active Substance: RAMIPRIL
  13. SUMATRIPTAN. [Concomitant]
     Active Substance: SUMATRIPTAN

REACTIONS (5)
  - Aphasia [Unknown]
  - Drug ineffective [Recovering/Resolving]
  - Nausea [Unknown]
  - Migraine [Unknown]
  - Neck pain [Unknown]

NARRATIVE: CASE EVENT DATE: 20190201
